FAERS Safety Report 10169626 (Version 3)
Quarter: 2014Q2

REPORT INFORMATION
  Report Type: Report from Study
  Country: US (occurrence: US)
  Receive Date: 20140513
  Receipt Date: 20140515
  Transmission Date: 20141212
  Serious: Yes (Disabling, Other)
  Sender: FDA-Public Use
  Company Number: US-JNJFOC-20140408823

PATIENT
  Age: 50 Year
  Sex: Male
  Weight: 83.92 kg

DRUGS (4)
  1. OLYSIO [Suspect]
     Indication: HEPATITIS C
     Route: 048
     Dates: start: 20140217
  2. SOVALDI [Suspect]
     Indication: HEPATITIS C
     Route: 048
     Dates: start: 20140217
  3. OMEPRAZOLE [Concomitant]
     Route: 048
     Dates: start: 201401
  4. CITRUCEL [Concomitant]
     Route: 048
     Dates: start: 201401

REACTIONS (9)
  - Hepatic encephalopathy [Not Recovered/Not Resolved]
  - Hyperammonaemia [Not Recovered/Not Resolved]
  - Blood albumin decreased [Not Recovered/Not Resolved]
  - Blood sodium decreased [Not Recovered/Not Resolved]
  - Memory impairment [Not Recovered/Not Resolved]
  - Off label use [Not Recovered/Not Resolved]
  - Headache [Not Recovered/Not Resolved]
  - Fatigue [Not Recovered/Not Resolved]
  - Dizziness [Not Recovered/Not Resolved]
